APPROVED DRUG PRODUCT: PYRIDOSTIGMINE BROMIDE
Active Ingredient: PYRIDOSTIGMINE BROMIDE
Strength: 60MG/5ML
Dosage Form/Route: SYRUP;ORAL
Application: A212405 | Product #001 | TE Code: AA
Applicant: MILLA PHARMACEUTICALS INC
Approved: Apr 19, 2022 | RLD: No | RS: No | Type: RX